FAERS Safety Report 26200033 (Version 1)
Quarter: 2025Q4

REPORT INFORMATION
  Report Type: Spontaneous
  Country: EU (occurrence: EU)
  Receive Date: 20251225
  Receipt Date: 20251225
  Transmission Date: 20260118
  Serious: Yes (Disabling)
  Sender: NOVARTIS
  Company Number: None

PATIENT
  Age: 64 Year
  Sex: Male
  Weight: 76 kg

DRUGS (3)
  1. EVEROLIMUS [Suspect]
     Active Substance: EVEROLIMUS
     Indication: Meningioma
     Dosage: 1 DOSAGE FORM, QD
     Route: 048
     Dates: start: 20241125, end: 20250602
  2. VEGZELMA [Suspect]
     Active Substance: BEVACIZUMAB-ADCD
     Indication: Meningioma
     Dosage: 1 DOSAGE FORM (SOLUTION ? DILUER POUR PERFUSION) (((MAMMIFERE/HAMSTER/CELLULES CHO))  )
     Route: 042
     Dates: start: 20241125, end: 20250526
  3. OCTREOTIDE [Concomitant]
     Active Substance: OCTREOTIDE
     Indication: Meningioma
     Dosage: 1 DOSAGE FORM, QD
     Route: 065
     Dates: start: 20241125, end: 20250602

REACTIONS (1)
  - Pain in extremity [Recovering/Resolving]

NARRATIVE: CASE EVENT DATE: 20250217
